FAERS Safety Report 21734640 (Version 1)
Quarter: 2022Q4

REPORT INFORMATION
  Report Type: Report from Study
  Country: EG (occurrence: EG)
  Receive Date: 20221215
  Receipt Date: 20221215
  Transmission Date: 20230112
  Serious: Yes (Other)
  Sender: FDA-Public Use
  Company Number: EG-002147023-NVSC2022EG285956

PATIENT
  Age: 26 Year
  Sex: Female

DRUGS (5)
  1. GILENYA [Suspect]
     Active Substance: FINGOLIMOD HYDROCHLORIDE
     Indication: Multiple sclerosis
     Dosage: 1 DOSAGE FORM, QD
     Route: 048
     Dates: start: 202109
  2. BENFOTIAMINE\CYANOCOBALAMIN\PYRIDOXINE HYDROCHLORIDE [Concomitant]
     Active Substance: BENFOTIAMINE\CYANOCOBALAMIN\PYRIDOXINE HYDROCHLORIDE
     Indication: Neuralgia
     Dosage: UNK UNK, QD
     Route: 065
     Dates: start: 202105
  3. PANADOL [Concomitant]
     Active Substance: ACETAMINOPHEN
     Indication: Analgesic therapy
     Dosage: UNK, PRN
     Route: 065
  4. DEVAROL [Concomitant]
     Indication: Vitamin D deficiency
     Dosage: UNK UNK, QMO (SHE TAKES IT WHEN DEVAROL WAS AVAILABLE, IN CASE IT WAS NOT AVAILABLE SHE TAKES VIT D
     Route: 065
     Dates: start: 202201
  5. VITAMIN D NOS [Concomitant]
     Active Substance: VITAMIN D NOS
     Indication: Vitamin D deficiency
     Dosage: UNK, QD (SHE WAS TAKING IT IN A CONTNIOUS MANNER TILL  JAN-2022, AFTER THAT SHE TAKES IT ALTERNATIVE
     Route: 065
     Dates: start: 202109

REACTIONS (4)
  - White blood cell count decreased [Unknown]
  - Anaemia [Not Recovered/Not Resolved]
  - Headache [Not Recovered/Not Resolved]
  - Hepatic enzyme increased [Recovered/Resolved]

NARRATIVE: CASE EVENT DATE: 20220501
